FAERS Safety Report 8473741-7 (Version None)
Quarter: 2012Q2

REPORT INFORMATION
  Report Type: 
  Country: None (occurrence: None)
  Receive Date: 20120628
  Receipt Date: 20120625
  Transmission Date: 20120825
  Serious: Yes (Other)
  Sender: FDA-Public Use
  Company Number: US-MYLANLABS-2011S1021164

PATIENT
  Age: 56 Year
  Sex: Female

DRUGS (6)
  1. LORAZEPAM [Concomitant]
  2. CLOZAPINE [Suspect]
     Route: 048
     Dates: end: 20110930
  3. METOPROLOL TARTRATE [Concomitant]
  4. CLOZAPINE [Suspect]
     Route: 048
     Dates: end: 20110930
  5. ZYPREXA [Concomitant]
  6. RANITIDINE [Concomitant]

REACTIONS (2)
  - GRANULOCYTOPENIA [None]
  - LEUKOPENIA [None]
